FAERS Safety Report 8406806-6 (Version None)
Quarter: 2012Q2

REPORT INFORMATION
  Report Type: 
  Country: None (occurrence: None)
  Receive Date: 20120529
  Receipt Date: 20120515
  Transmission Date: 20120825
  Serious: Yes (Hospitalization)
  Sender: FDA-Public Use
  Company Number: AUR-APL-2012-02261

PATIENT
  Sex: Female

DRUGS (2)
  1. CITALOPRAM HYDROBROMIDE [Suspect]
     Indication: PRODUCT USED FOR UNKNOWN INDICATION
     Dosage: (20 MG) (40 MG)
  2. PALIPERIDONE [Suspect]
     Indication: PSYCHOTIC DISORDER
     Dosage: (100 MG), INTRAMUSCULAR (150 MG), INTRAMUSCULAR
     Route: 030

REACTIONS (5)
  - PSYCHOTIC DISORDER [None]
  - AKATHISIA [None]
  - TREATMENT NONCOMPLIANCE [None]
  - MUSCULOSKELETAL STIFFNESS [None]
  - AGITATION [None]
